FAERS Safety Report 24580864 (Version 1)
Quarter: 2024Q4

REPORT INFORMATION
  Report Type: Spontaneous
  Country: CH (occurrence: CH)
  Receive Date: 20241105
  Receipt Date: 20241105
  Transmission Date: 20250115
  Serious: Yes (Other)
  Sender: TEVA
  Company Number: CH-TEVA-VS-3259987

PATIENT
  Age: 59 Year

DRUGS (1)
  1. PACLITAXEL [Suspect]
     Active Substance: PACLITAXEL
     Indication: Anal cancer metastatic
     Route: 065

REACTIONS (1)
  - Anaphylactic reaction [Unknown]
